FAERS Safety Report 15315638 (Version 1)
Quarter: 2018Q3

REPORT INFORMATION
  Report Type: Spontaneous
  Country: US (occurrence: US)
  Receive Date: 20180815
  Receipt Date: 20180815
  Transmission Date: 20181010
  Serious: Yes (Other)
  Sender: FDA-Public Use
  Company Number: None

PATIENT
  Age: 17 Year
  Weight: 61 kg

DRUGS (2)
  1. MM?398  5 MG/ML LIPOSOMAL IRINOTECAN FROM MERRICK PHARMACEUTICALS [Suspect]
     Active Substance: IRINOTECAN SUCROSOFATE
     Indication: INVESTIGATION
     Route: 042
  2. ONIVYDE [Suspect]
     Active Substance: IRINOTECAN HYDROCHLORIDE
     Indication: OSTEOSARCOMA
     Route: 042

REACTIONS (1)
  - Product label confusion [None]

NARRATIVE: CASE EVENT DATE: 20180509
